FAERS Safety Report 5383713-7 (Version None)
Quarter: 2007Q3

REPORT INFORMATION
  Report Type: 
  Country: None (occurrence: None)
  Receive Date: 20070706
  Receipt Date: 20070619
  Transmission Date: 20080115
  Serious: Yes (Hospitalization)
  Sender: FDA-Public Use
  Company Number: 2007PL00019

PATIENT
  Age: 89 Year
  Sex: Female

DRUGS (1)
  1. HELIDAC [Suspect]
     Indication: HELICOBACTER INFECTION
     Dosage: 4 PILLS; QID; PO
     Route: 048
     Dates: start: 20070201, end: 20070203

REACTIONS (4)
  - DEHYDRATION [None]
  - DIARRHOEA [None]
  - FAECES DISCOLOURED [None]
  - VOMITING [None]
